FAERS Safety Report 7027676-7 (Version None)
Quarter: 2010Q4

REPORT INFORMATION
  Report Type: 
  Country: None (occurrence: None)
  Receive Date: 20101004
  Receipt Date: 20100927
  Transmission Date: 20110411
  Serious: Yes (Life-Threatening, Hospitalization)
  Sender: FDA-Public Use
  Company Number: FR-AMGEN-QUU436640

PATIENT
  Sex: Female
  Weight: 65 kg

DRUGS (5)
  1. ENBREL [Suspect]
     Indication: RHEUMATOID ARTHRITIS
     Dosage: 50 MG (FREQ UNSPEC)
     Route: 058
     Dates: start: 20100723, end: 20100818
  2. TOPALGIC [Concomitant]
     Indication: RHEUMATOID ARTHRITIS
     Dosage: 200 MG (FREQ UNSPEC)
     Route: 048
     Dates: start: 20060101
  3. PROFENID [Concomitant]
     Indication: RHEUMATOID ARTHRITIS
     Dosage: 200 MG (FREQ UNSPEC)
     Route: 048
     Dates: start: 20010101
  4. METHOTREXATE [Concomitant]
     Indication: RHEUMATOID ARTHRITIS
     Dosage: 15 MG (FREQ UNSPEC)
     Route: 048
     Dates: start: 20020101
  5. CORTANCYL [Concomitant]
     Indication: RHEUMATOID ARTHRITIS
     Dosage: 4 MG (FREQ UNSPEC)
     Route: 048
     Dates: start: 20010101

REACTIONS (2)
  - ATRIAL FIBRILLATION [None]
  - CARDIAC FAILURE [None]
